FAERS Safety Report 14079363 (Version 1)
Quarter: 2017Q4

REPORT INFORMATION
  Report Type: Spontaneous
  Country: FR (occurrence: FR)
  Receive Date: 20171012
  Receipt Date: 20171012
  Transmission Date: 20180321
  Serious: Yes (Life-Threatening)
  Sender: FDA-Public Use
  Company Number: FR-B. BRAUN MEDICAL INC.-2029786

PATIENT
  Age: 75 Year
  Sex: Female

DRUGS (7)
  1. CEFEPIME [Suspect]
     Active Substance: CEFEPIME HYDROCHLORIDE
     Route: 042
     Dates: start: 20160831, end: 20160831
  2. PIPERACILLIN AND TAZOBACTAM [Suspect]
     Active Substance: PIPERACILLIN SODIUM\TAZOBACTAM SODIUM
     Route: 042
     Dates: start: 20160901, end: 20160901
  3. INDAPAMIDE. [Concomitant]
     Active Substance: INDAPAMIDE
  4. METRONIDAZOLE. [Suspect]
     Active Substance: METRONIDAZOLE
     Indication: LUNG DISORDER
     Route: 042
     Dates: start: 20160831, end: 20160901
  5. ESTRADIOL. [Concomitant]
     Active Substance: ESTRADIOL
  6. HEPARIN [Concomitant]
     Active Substance: HEPARIN SODIUM
  7. CEFOTAXIME [Suspect]
     Active Substance: CEFOTAXIME SODIUM
     Route: 042
     Dates: start: 20160831, end: 20160831

REACTIONS (1)
  - Thrombocytopenia [None]
